FAERS Safety Report 5351144-1 (Version None)
Quarter: 2007Q2

REPORT INFORMATION
  Report Type: 
  Country: None (occurrence: None)
  Receive Date: 20070608
  Receipt Date: 20070529
  Transmission Date: 20071010
  Serious: Yes (Other)
  Sender: FDA-Public Use
  Company Number: US-PFIZER INC-2007041734

PATIENT
  Sex: Female
  Weight: 53.1 kg

DRUGS (3)
  1. CHANTIX [Suspect]
     Indication: EX-SMOKER
     Dates: start: 20070501, end: 20070518
  2. NORPACE [Concomitant]
  3. ALL OTHER THERAPEUTIC PRODUCTS [Concomitant]

REACTIONS (2)
  - CHEST PAIN [None]
  - HYPOAESTHESIA [None]
